FAERS Safety Report 19461034 (Version 1)
Quarter: 2021Q2

REPORT INFORMATION
  Report Type: Spontaneous
  Country: PE (occurrence: PE)
  Receive Date: 20210625
  Receipt Date: 20210625
  Transmission Date: 20210717
  Serious: Yes (Death, Other)
  Sender: FDA-Public Use
  Company Number: PE-B.I. PHARMACEUTICALS,INC./RIDGEFIELD-2021-BI-090341

PATIENT
  Age: 47 Year
  Sex: Female
  Weight: 30 kg

DRUGS (4)
  1. OMEPRAZOL [OMEPRAZOLE] [Concomitant]
     Active Substance: OMEPRAZOLE
     Indication: GASTRITIS
     Dosage: QD
     Route: 048
  2. SPIOLTO [Suspect]
     Active Substance: OLODATEROL HYDROCHLORIDE\TIOTROPIUM BROMIDE MONOHYDRATE
     Indication: CHRONIC OBSTRUCTIVE PULMONARY DISEASE
     Dosage: SPIOLTO: 2.5/2.5 UG QD: 1 INHALATION PER DAY
     Route: 055
     Dates: start: 20201215, end: 20201215
  3. VENTOLIN [Concomitant]
     Active Substance: ALBUTEROL SULFATE
     Indication: CHRONIC OBSTRUCTIVE PULMONARY DISEASE
     Dosage: 2 PUFF 2?3 TIMES PER DAY
     Route: 055
  4. GASEOVET [Concomitant]
     Indication: GASTRITIS
     Dosage: TID
     Route: 048

REACTIONS (7)
  - Chronic obstructive pulmonary disease [Fatal]
  - Muscle spasms [Recovered/Resolved]
  - Respiratory arrest [Fatal]
  - Dry throat [Recovered/Resolved]
  - Breath sounds [Recovered/Resolved]
  - Cough [Recovered/Resolved]
  - Lower respiratory tract congestion [Recovered/Resolved]

NARRATIVE: CASE EVENT DATE: 20151215
